FAERS Safety Report 18217032 (Version 1)
Quarter: 2020Q3

REPORT INFORMATION
  Report Type: Spontaneous
  Country: DE (occurrence: DE)
  Receive Date: 20200901
  Receipt Date: 20200901
  Transmission Date: 20201103
  Serious: Yes (Hospitalization, Other)
  Sender: FDA-Public Use
  Company Number: DE-HORIZON-PRO-0203-2020

PATIENT
  Age: 7 Year
  Sex: Female
  Weight: 31 kg

DRUGS (8)
  1. OMEPRAZOLE. [Concomitant]
     Active Substance: OMEPRAZOLE
     Indication: PRODUCT USED FOR UNKNOWN INDICATION
     Dosage: 10MG DAILY
  2. URO?TABLINEN [Concomitant]
     Indication: PRODUCT USED FOR UNKNOWN INDICATION
     Dosage: 50MG 0?0?1
  3. BICANORM [Concomitant]
     Active Substance: SODIUM BICARBONATE
     Indication: CYSTINOSIS
     Dosage: 3 DF (1G TABLETS) EVERY DAYS 3 SEPARATED DOSES
  4. REDUCTO?SPEZIAL [Concomitant]
     Indication: CYSTINOSIS
     Dosage: 1?0 TABLET
  5. KALINORM [Concomitant]
     Indication: CYSTINOSIS
     Dosage: 4?3?4 BTBL
  6. VIGANTOLETTEN [Concomitant]
     Active Substance: CHOLECALCIFEROL
     Indication: PRODUCT USED FOR UNKNOWN INDICATION
     Dosage: 2000 IU DAILY
  7. CYSTADROPS [Concomitant]
     Active Substance: CYSTEAMINE HYDROCHLORIDE
     Indication: CYSTINOSIS
     Dosage: 3.8MG/ML AT AN UNKNOWN FREQUENCY
  8. PROCYSBI [Suspect]
     Active Substance: CYSTEAMINE BITARTRATE
     Indication: CYSTINOSIS
     Dosage: 14 DF (75MG CAPSULES) QD

REACTIONS (3)
  - Product administration error [Unknown]
  - Condition aggravated [Unknown]
  - Treatment noncompliance [Unknown]

NARRATIVE: CASE EVENT DATE: 20190418
